FAERS Safety Report 15573404 (Version 2)
Quarter: 2018Q4

REPORT INFORMATION
  Report Type: Spontaneous
  Country: US (occurrence: US)
  Receive Date: 20181101
  Receipt Date: 20181126
  Transmission Date: 20190205
  Serious: No
  Sender: FDA-Public Use
  Company Number: US-AMGEN-USASP2018152053

PATIENT
  Age: 72 Year
  Sex: Male

DRUGS (2)
  1. NEULASTA [Suspect]
     Active Substance: PEGFILGRASTIM
     Indication: PANCYTOPENIA
     Dosage: UNK
     Route: 065
     Dates: start: 20181018
  2. NEULASTA [Suspect]
     Active Substance: PEGFILGRASTIM
     Indication: OESOPHAGEAL CARCINOMA

REACTIONS (2)
  - Off label use [Unknown]
  - Unintentional medical device removal [Unknown]

NARRATIVE: CASE EVENT DATE: 20181018
